FAERS Safety Report 16131719 (Version 3)
Quarter: 2019Q2

REPORT INFORMATION
  Report Type: Report from Study
  Country: None (occurrence: US)
  Receive Date: 20190329
  Receipt Date: 20190611
  Transmission Date: 20190711
  Serious: Yes (Hospitalization)
  Sender: FDA-Public Use
  Company Number: US-ABBVIE-19K-163-2720185-00

PATIENT
  Age: 69 Year
  Sex: Female
  Weight: 102.51 kg

DRUGS (4)
  1. LUMINEX [Concomitant]
     Indication: PRODUCT USED FOR UNKNOWN INDICATION
  2. VITAMIN B12 [Concomitant]
     Active Substance: CYANOCOBALAMIN
     Indication: RHEUMATOID ARTHRITIS
  3. HUMIRA [Suspect]
     Active Substance: ADALIMUMAB
     Indication: RHEUMATOID ARTHRITIS
     Route: 058
     Dates: end: 201903
  4. FOLIC ACID. [Concomitant]
     Active Substance: FOLIC ACID
     Indication: RHEUMATOID ARTHRITIS

REACTIONS (12)
  - Cardiac failure congestive [Not Recovered/Not Resolved]
  - Throat irritation [Unknown]
  - Lip pain [Recovered/Resolved]
  - Hallucination [Recovered/Resolved]
  - Haemoglobin decreased [Unknown]
  - Lip haemorrhage [Recovered/Resolved]
  - Heart valve incompetence [Unknown]
  - Lip blister [Unknown]
  - White blood cell count decreased [Unknown]
  - Renal disorder [Not Recovered/Not Resolved]
  - Pharyngeal swelling [Recovered/Resolved]
  - Oropharyngeal pain [Recovered/Resolved]

NARRATIVE: CASE EVENT DATE: 2019
